FAERS Safety Report 8294171-7 (Version None)
Quarter: 2012Q2

REPORT INFORMATION
  Report Type: 
  Country: None (occurrence: None)
  Receive Date: 20120418
  Receipt Date: 20120412
  Transmission Date: 20120825
  Serious: Yes (Other)
  Sender: FDA-Public Use
  Company Number: PHHY2012IT031254

PATIENT
  Age: 70 Year
  Sex: Female

DRUGS (2)
  1. CARBAMAZEPINE [Suspect]
     Dosage: 300 MG/DAY
  2. CARBAMAZEPINE [Suspect]
     Indication: EPILEPSY
     Dosage: 200 MG, UNK

REACTIONS (6)
  - CONFUSIONAL STATE [None]
  - ANTICONVULSANT DRUG LEVEL INCREASED [None]
  - MEMORY IMPAIRMENT [None]
  - HYPERSOMNIA [None]
  - PSYCHOMOTOR SKILLS IMPAIRED [None]
  - TOXIC ENCEPHALOPATHY [None]
